FAERS Safety Report 22312568 (Version 4)
Quarter: 2023Q2

REPORT INFORMATION
  Report Type: Spontaneous
  Country: US (occurrence: US)
  Receive Date: 20230512
  Receipt Date: 20230621
  Transmission Date: 20230721
  Serious: Yes (Other)
  Sender: FDA-Public Use
  Company Number: US-BAUSCHBL-2023BNL003972

PATIENT
  Sex: Female

DRUGS (3)
  1. LATANOPROST [Suspect]
     Active Substance: LATANOPROST
     Indication: Intraocular pressure test
     Dosage: ONCE IN THE EVENING
     Route: 065
     Dates: start: 2015
  2. NYSTATIN [Concomitant]
     Active Substance: NYSTATIN
     Indication: Blood cholesterol
     Dosage: ON AND OFF FOR A COUPLE OF YEARS
  3. PRESERVISION AREDS 2 EYE VITAMIN MINERAL SUPPLEMENT [Concomitant]
     Indication: Product used for unknown indication
     Dates: start: 202305

REACTIONS (3)
  - Macular degeneration [Recovered/Resolved]
  - Cystoid macular oedema [Recovered/Resolved]
  - Intraocular pressure increased [Recovered/Resolved]

NARRATIVE: CASE EVENT DATE: 20230404
